FAERS Safety Report 4448599-3 (Version None)
Quarter: 2004Q3

REPORT INFORMATION
  Report Type: 
  Country: None (occurrence: None)
  Receive Date: 20040909
  Receipt Date: 20040826
  Transmission Date: 20050211
  Serious: Yes (Hospitalization)
  Sender: FDA-Public Use
  Company Number: 208760

PATIENT
  Age: 69 Year
  Sex: Female
  Weight: 61 kg

DRUGS (6)
  1. RITUXIMAB (RITUXIMAB) CONC FOR SOLUTION FOR INFUSION [Suspect]
     Indication: CHRONIC LYMPHOCYTIC LEUKAEMIA
     Dosage: 500 MG/M2, INTRAVENOUS
     Route: 042
     Dates: start: 20040202, end: 20040705
  2. FLUDARABINE (FLUDARABINE PHOSPHATE) [Suspect]
     Indication: CHRONIC LYMPHOCYTIC LEUKAEMIA
     Dosage: 25 MG/M2, INTRAVENOUS
     Route: 042
     Dates: start: 20040203, end: 20040707
  3. CYCLOPHOSPHAMIDE [Suspect]
     Indication: CHRONIC LYMPHOCYTIC LEUKAEMIA
     Dosage: 250 MG/M2 INTRAVENOUS
     Route: 042
     Dates: start: 20040203, end: 20040707
  4. BACTRIM DS [Concomitant]
  5. VALACYCLOVIR HCL [Concomitant]
  6. POTASSIUM CHLORIDE [Concomitant]

REACTIONS (1)
  - FEBRILE BONE MARROW APLASIA [None]
